FAERS Safety Report 8342001-7 (Version None)
Quarter: 2012Q1

REPORT INFORMATION
  Report Type: 
  Country: None (occurrence: None)
  Receive Date: 20120330
  Receipt Date: 20030930
  Transmission Date: 20120608
  Serious: Yes (Other)
  Sender: FDA-Public Use
  Company Number: PHEH2003US09034

PATIENT
  Age: 71 Year
  Sex: Male

DRUGS (6)
  1. EXELON [Suspect]
     Indication: DEMENTIA ALZHEIMER'S TYPE
     Dosage: 1.5 MG, BID, ORAL
     Route: 048
     Dates: start: 20010818
  2. FOLIC ACID [Concomitant]
  3. FERROUS SULFATE TAB [Concomitant]
  4. OLANZAPINE [Concomitant]
  5. LISINOPRIL [Concomitant]
  6. FLUORIDE (NO INGREDIENTS/SUBSTANCES) [Concomitant]

REACTIONS (4)
  - DROOLING [None]
  - HEADACHE [None]
  - TRANSIENT ISCHAEMIC ATTACK [None]
  - ASTHENIA [None]
